FAERS Safety Report 23362537 (Version 1)
Quarter: 2024Q1

REPORT INFORMATION
  Report Type: Spontaneous
  Country: US (occurrence: None)
  Receive Date: 20240103
  Receipt Date: 20240103
  Transmission Date: 20240410
  Serious: Yes (Disabling, Other)
  Sender: FDA-Public Use
  Company Number: None

PATIENT
  Age: 69 Year
  Sex: Female
  Weight: 59.4 kg

DRUGS (1)
  1. LAGEVRIO [Suspect]
     Active Substance: MOLNUPIRAVIR
     Indication: COVID-19
     Dosage: OTHER QUANTITY : 40 CAPSULE(S);?FREQUENCY : TWICE A DAY;?
     Route: 048
     Dates: start: 20231229, end: 20240101

REACTIONS (8)
  - Balance disorder [None]
  - Vertigo [None]
  - Dizziness [None]
  - Nausea [None]
  - Retching [None]
  - Choking [None]
  - Feeding disorder [None]
  - Oligodipsia [None]

NARRATIVE: CASE EVENT DATE: 20231230
